FAERS Safety Report 18138200 (Version 2)
Quarter: 2020Q3

REPORT INFORMATION
  Report Type: Report from Study
  Country: None (occurrence: CA)
  Receive Date: 20200812
  Receipt Date: 20200911
  Transmission Date: 20201103
  Serious: No
  Sender: FDA-Public Use
  Company Number: CA-ABBVIE-20K-028-3520817-00

PATIENT
  Sex: Male
  Weight: 95 kg

DRUGS (1)
  1. HUMIRA [Suspect]
     Active Substance: ADALIMUMAB
     Indication: CROHN^S DISEASE
     Route: 058
     Dates: start: 20200508

REACTIONS (2)
  - Drug ineffective [Not Recovered/Not Resolved]
  - Fistula [Recovered/Resolved]

NARRATIVE: CASE EVENT DATE: 2020
